FAERS Safety Report 8208687-2 (Version None)
Quarter: 2012Q1

REPORT INFORMATION
  Report Type: 
  Country: None (occurrence: None)
  Receive Date: 20120314
  Receipt Date: 20120306
  Transmission Date: 20120608
  Serious: Yes (Hospitalization)
  Sender: FDA-Public Use
  Company Number: US-BAYER-2011-047141

PATIENT
  Age: 31 Year
  Sex: Female
  Weight: 96 kg

DRUGS (5)
  1. YAZ [Suspect]
     Dosage: UNK
     Route: 048
     Dates: start: 20070801, end: 20070901
  2. YASMIN [Suspect]
     Indication: ACNE
     Dosage: UNK
     Route: 048
     Dates: start: 20060101, end: 20070801
  3. ULTRACET [Concomitant]
     Route: 048
  4. CLARITIN [Concomitant]
  5. RETIN-A [Concomitant]

REACTIONS (7)
  - FEAR OF DISEASE [None]
  - ANXIETY [None]
  - DEEP VEIN THROMBOSIS [None]
  - PAIN [None]
  - PSYCHOLOGICAL TRAUMA [None]
  - ANHEDONIA [None]
  - EMOTIONAL DISTRESS [None]
